FAERS Safety Report 25965711 (Version 2)
Quarter: 2025Q4

REPORT INFORMATION
  Report Type: Spontaneous
  Country: US (occurrence: US)
  Receive Date: 20251027
  Receipt Date: 20251106
  Transmission Date: 20260117
  Serious: Yes (Hospitalization, Other)
  Sender: DERMARITE INDUSTRIES
  Company Number: US-DERMARITE INDUSTRIES, LLC.-2025-DER-US000077

PATIENT

DRUGS (3)
  1. DERMAKLEEN [Suspect]
     Active Substance: CHLOROXYLENOL
     Indication: Therapeutic skin care topical
     Dosage: UNK UNK, DAILY
     Route: 061
     Dates: start: 2023, end: 2025
  2. ALOE [Suspect]
     Active Substance: ALOE
     Indication: Product used for unknown indication
     Dosage: UNKNOWN
     Route: 065
  3. PERIGIENE [Suspect]
     Active Substance: CHLOROXYLENOL
     Indication: Product used for unknown indication
     Dosage: UNKNOWN
     Route: 065

REACTIONS (5)
  - Pyelonephritis [Recovered/Resolved]
  - Septic shock [Recovered/Resolved]
  - Multiple organ dysfunction syndrome [Unknown]
  - Malaise [Unknown]
  - Contusion [Unknown]

NARRATIVE: CASE EVENT DATE: 20250101
